FAERS Safety Report 10080429 (Version 1)
Quarter: 2014Q2

REPORT INFORMATION
  Report Type: Spontaneous
  Country: US (occurrence: US)
  Receive Date: 20140416
  Receipt Date: 20140416
  Transmission Date: 20141212
  Serious: No
  Sender: FDA-Public Use
  Company Number: US-B.I. PHARMACEUTICALS,INC./RIDGEFIELD-2014-BI-15471BP

PATIENT
  Age: 71 Year
  Sex: Female
  Weight: 73 kg

DRUGS (9)
  1. PRADAXA [Suspect]
     Indication: ATRIAL FIBRILLATION
     Dosage: 300 MG
     Route: 048
     Dates: start: 20140115
  2. BENAZEPRIL [Concomitant]
     Indication: HYPERTENSION
     Dosage: 20 MG
     Route: 048
  3. ILEVRO EYE SUSPENSION [Concomitant]
     Indication: CATARACT
     Route: 050
  4. ALPHAGAN EYE DROPS [Concomitant]
     Indication: GLAUCOMA
     Route: 050
  5. OCUVITE VITAMIN [Concomitant]
     Route: 048
  6. FLUOXETINE [Concomitant]
     Indication: ANXIETY
     Dosage: 20 MG
     Route: 048
  7. TOPROL [Concomitant]
     Indication: ATRIAL FIBRILLATION
     Dosage: 25 MG
     Route: 048
  8. RYTHMOL [Concomitant]
     Indication: ATRIAL FIBRILLATION
     Dosage: 300 MG
     Route: 048
  9. BENEADRYL [Concomitant]
     Indication: SEASONAL ALLERGY
     Route: 048

REACTIONS (6)
  - Ocular hyperaemia [Not Recovered/Not Resolved]
  - Eye irritation [Not Recovered/Not Resolved]
  - Dizziness [Not Recovered/Not Resolved]
  - Hypotension [Not Recovered/Not Resolved]
  - Pruritus [Recovered/Resolved]
  - Eye haemorrhage [Recovered/Resolved]
